FAERS Safety Report 9112965 (Version 1)
Quarter: 2013Q1

REPORT INFORMATION
  Report Type: Spontaneous
  Country: FR (occurrence: FR)
  Receive Date: 20130211
  Receipt Date: 20130211
  Transmission Date: 20140127
  Serious: Yes (Life-Threatening, Hospitalization)
  Sender: FDA-Public Use
  Company Number: FR-ASTRAZENECA-2013SE08689

PATIENT
  Age: 22248 Day
  Sex: Female

DRUGS (5)
  1. XEROQUEL [Suspect]
     Route: 048
     Dates: start: 20121219
  2. PARACETAMOL [Suspect]
     Route: 048
     Dates: start: 20121219
  3. XANAX [Suspect]
     Route: 048
     Dates: start: 20121219
  4. PROKINYL [Concomitant]
  5. MOPRAL [Concomitant]

REACTIONS (4)
  - Conduction disorder [Recovered/Resolved]
  - Depressed level of consciousness [Recovered/Resolved]
  - Suicide attempt [Unknown]
  - Electrocardiogram QT prolonged [Recovered/Resolved]
